FAERS Safety Report 10693960 (Version 3)
Quarter: 2015Q1

REPORT INFORMATION
  Report Type: Spontaneous
  Country: US (occurrence: US)
  Receive Date: 20150106
  Receipt Date: 20150220
  Transmission Date: 20150721
  Serious: No
  Sender: FDA-Public Use
  Company Number: US-PFIZER INC-2014363328

PATIENT
  Age: 72 Year
  Sex: Male

DRUGS (1)
  1. CAVERJECT IMPULSE [Suspect]
     Active Substance: ALPROSTADIL
     Indication: ERECTILE DYSFUNCTION
     Dosage: 5 MG, AS NEEDED

REACTIONS (3)
  - Drug ineffective [Unknown]
  - Injection site haemorrhage [Unknown]
  - Product quality issue [Unknown]
